FAERS Safety Report 10018481 (Version 1)
Quarter: 2014Q1

REPORT INFORMATION
  Report Type: Report from Study
  Country: US (occurrence: US)
  Receive Date: 20140318
  Receipt Date: 20140318
  Transmission Date: 20141002
  Serious: Yes (Other)
  Sender: FDA-Public Use
  Company Number: US-ROCHE-1361309

PATIENT
  Age: 19 Year
  Sex: Female

DRUGS (9)
  1. XOLAIR [Suspect]
     Indication: ASTHMA
     Dosage: MAXIMUM DOSE
     Route: 065
     Dates: start: 201402
  2. XOLAIR [Suspect]
     Route: 065
     Dates: start: 20140226, end: 20140226
  3. ALBUTEROL [Concomitant]
     Route: 055
  4. ALBUTEROL [Concomitant]
     Route: 065
  5. ADVAIR [Concomitant]
  6. ZOLOFT [Concomitant]
  7. ALLERGY SHOTS [Concomitant]
  8. ZYRTEC [Concomitant]
     Route: 065
  9. DEPO-PROVERA [Concomitant]
     Indication: CONTRACEPTION

REACTIONS (6)
  - Hypersensitivity [Unknown]
  - Pharyngeal oedema [Recovered/Resolved]
  - Swollen tongue [Recovered/Resolved]
  - Rash [Recovered/Resolved]
  - Wheezing [Recovered/Resolved]
  - Dizziness [Recovered/Resolved]
